FAERS Safety Report 22343053 (Version 2)
Quarter: 2025Q3

REPORT INFORMATION
  Report Type: Report from Study
  Country: US (occurrence: US)
  Receive Date: 20230519
  Receipt Date: 20250829
  Transmission Date: 20251021
  Serious: No
  Sender: VIIV
  Company Number: US-VIIV HEALTHCARE LIMITED-US2023AMR067723

PATIENT
  Age: 26 Year
  Sex: Female

DRUGS (3)
  1. CABOTEGRAVIR [Suspect]
     Active Substance: CABOTEGRAVIR
     Indication: Acquired immunodeficiency syndrome
     Dosage: 600 MG, MO X2
     Dates: start: 20230407
  2. CABOTEGRAVIR [Suspect]
     Active Substance: CABOTEGRAVIR
     Indication: HIV infection
     Dosage: 600 MG, Q2M
     Dates: end: 20230510
  3. CABOTEGRAVIR [Suspect]
     Active Substance: CABOTEGRAVIR

REACTIONS (2)
  - Anger [Unknown]
  - Off label use [Unknown]

NARRATIVE: CASE EVENT DATE: 20230510
